FAERS Safety Report 4387162-X (Version None)
Quarter: 2004Q2

REPORT INFORMATION
  Report Type: 
  Country: None (occurrence: None)
  Receive Date: 20040630
  Receipt Date: 20040317
  Transmission Date: 20050107
  Serious: No
  Sender: FDA-Public Use
  Company Number: US-GLAXOSMITHKLINE-A0503218A

PATIENT
  Age: 10 Year
  Sex: Female

DRUGS (3)
  1. ADVAIR HFA [Suspect]
     Indication: ASTHMA
     Dosage: 1PUFF TWICE PER DAY
     Route: 055
     Dates: start: 20020601
  2. SINGULAIR [Concomitant]
  3. ZYRTEC [Concomitant]

REACTIONS (6)
  - DRY MOUTH [None]
  - DYSGEUSIA [None]
  - FLUSHING [None]
  - HALLUCINATION [None]
  - PHARMACEUTICAL PRODUCT COMPLAINT [None]
  - PYREXIA [None]
